FAERS Safety Report 8329431-4 (Version None)
Quarter: 2012Q2

REPORT INFORMATION
  Report Type: 
  Country: None (occurrence: None)
  Receive Date: 20120502
  Receipt Date: 20120410
  Transmission Date: 20120825
  Serious: Yes (Death, Other)
  Sender: FDA-Public Use
  Company Number: DE-MPIJNJ-2012-02213

PATIENT

DRUGS (2)
  1. VELCADE [Suspect]
     Indication: HEART TRANSPLANT
     Dosage: 1.0 MG/M2, CYCLIC
  2. DEXAMETHASONE [Suspect]
     Indication: HEART TRANSPLANT
     Dosage: 20 MG, CYCLIC

REACTIONS (2)
  - CYTOMEGALOVIRUS CHORIORETINITIS [None]
  - LYMPHOPROLIFERATIVE DISORDER [None]
